FAERS Safety Report 7263493-0 (Version None)
Quarter: 2011Q1

REPORT INFORMATION
  Report Type: 
  Country: None (occurrence: None)
  Receive Date: 20110130
  Receipt Date: 20101215
  Transmission Date: 20110831
  Serious: No
  Sender: FDA-Public Use
  Company Number: US-ABBOTT-10P-163-0691848-00

PATIENT
  Age: 73 Year
  Sex: Female

DRUGS (3)
  1. ATENOLOL [Concomitant]
     Indication: ANXIETY
  2. PRAVASTATIN SODIUM [Concomitant]
     Indication: BLOOD CHOLESTEROL
  3. HUMIRA [Suspect]
     Indication: RHEUMATOID ARTHRITIS
     Dates: start: 20060101

REACTIONS (1)
  - URINARY TRACT INFECTION [None]
